FAERS Safety Report 10465778 (Version 2)
Quarter: 2014Q4

REPORT INFORMATION
  Report Type: Report from Study
  Country: KR (occurrence: KR)
  Receive Date: 20140921
  Receipt Date: 20141222
  Transmission Date: 20150528
  Serious: No
  Sender: FDA-Public Use
  Company Number: PHHY2014KR121515

PATIENT
  Age: 58 Year
  Sex: Male

DRUGS (18)
  1. MUCOPECT [Concomitant]
     Indication: PRODUCTIVE COUGH
     Dosage: 30 MG
     Route: 048
     Dates: start: 20121113
  2. CONCOR [Concomitant]
     Active Substance: BISOPROLOL FUMARATE
     Indication: BLOOD PRESSURE
     Dosage: 2.5 MG
     Route: 048
     Dates: start: 20131218
  3. FEROBA [Concomitant]
     Indication: ANAEMIA
     Dosage: 2 DF
     Route: 048
     Dates: start: 20120706
  4. KANARB [Concomitant]
     Indication: BLOOD PRESSURE
     Dosage: 30 MG
     Route: 048
     Dates: start: 20120821
  5. APLACE [Concomitant]
     Active Substance: TROXIPIDE
     Indication: GASTROINTESTINAL DISORDER
     Dosage: 200 MG
     Route: 048
     Dates: start: 20131218
  6. FOLIC ACID. [Concomitant]
     Active Substance: FOLIC ACID
     Indication: ANAEMIA
     Dosage: 4 MG
     Route: 048
     Dates: start: 20120622
  7. PANTOLOC [Concomitant]
     Active Substance: PANTOPRAZOLE SODIUM
     Indication: GASTROINTESTINAL DISORDER
     Dosage: 40 MG
     Route: 048
     Dates: start: 20131218
  8. UCERAX [Concomitant]
     Indication: RASH
     Dosage: 10 MG
     Route: 048
     Dates: start: 20130402
  9. MUCOPECT [Concomitant]
     Dosage: 30 MG, UNK
     Route: 048
     Dates: start: 20131210
  10. PILOGEN [Concomitant]
     Indication: DRY MOUTH
     Dosage: 10 MG
     Route: 048
     Dates: start: 20130108
  11. ASPIRIN PROTECT [Concomitant]
     Active Substance: ASPIRIN
     Indication: ANGINA PECTORIS
     Dosage: 100 MG
     Route: 048
     Dates: start: 20130714
  12. FOLIC ACID. [Concomitant]
     Active Substance: FOLIC ACID
     Indication: LEUKAEMIA
  13. SOLONDO [Concomitant]
     Active Substance: PREDNISOLONE
     Indication: LEUKAEMIA
     Dosage: 2.5 MG
     Route: 048
     Dates: start: 20130108
  14. AMN107 [Suspect]
     Active Substance: NILOTINIB
     Indication: CHRONIC MYELOID LEUKAEMIA
     Dosage: 600 MG, QD
     Route: 048
     Dates: start: 20131210
  15. FEROBA [Concomitant]
     Indication: LEUKAEMIA
  16. ISOKET [Concomitant]
     Active Substance: ISOSORBIDE DINITRATE
     Indication: ANGINA PECTORIS
     Dosage: 1 OT
     Route: 065
     Dates: start: 20140103
  17. LIPINON [Concomitant]
     Indication: ARTERIOSCLEROSIS
     Dosage: 10 MG
     Route: 048
     Dates: start: 20140103
  18. LIPITOR [Concomitant]
     Active Substance: ATORVASTATIN CALCIUM
     Indication: ARTERIOSCLEROSIS
     Dosage: 10 MG
     Route: 048
     Dates: start: 20060509, end: 20140103

REACTIONS (3)
  - Stomatitis [Not Recovered/Not Resolved]
  - Cough [Recovered/Resolved]
  - Productive cough [Recovered/Resolved]

NARRATIVE: CASE EVENT DATE: 20131210
